FAERS Safety Report 11394096 (Version 5)
Quarter: 2015Q3

REPORT INFORMATION
  Report Type: Report from Study
  Country: GB (occurrence: GB)
  Receive Date: 20150819
  Receipt Date: 20150910
  Transmission Date: 20151125
  Serious: Yes (Hospitalization, Disabling, Other)
  Sender: FDA-Public Use
  Company Number: PHFR2015GB006104

PATIENT
  Age: 39 Year
  Sex: Male

DRUGS (1)
  1. LDE 225 [Suspect]
     Active Substance: ERISMODEGIB
     Indication: MEDULLOBLASTOMA RECURRENT
     Dosage: 600 MG, QD
     Route: 048
     Dates: start: 20150310, end: 20150424

REACTIONS (6)
  - Muscular weakness [Unknown]
  - Myositis [Recovering/Resolving]
  - Fatigue [Recovering/Resolving]
  - Blood creatine phosphokinase increased [Recovered/Resolved]
  - Myalgia [Unknown]
  - Dysgeusia [Not Recovered/Not Resolved]

NARRATIVE: CASE EVENT DATE: 20150310
